FAERS Safety Report 5008032-X (Version None)
Quarter: 2006Q2

REPORT INFORMATION
  Report Type: 
  Country: None (occurrence: None)
  Receive Date: 20060517
  Receipt Date: 20060502
  Transmission Date: 20061013
  Serious: Yes (Hospitalization)
  Sender: FDA-Public Use
  Company Number: DEU-2005-0001812

PATIENT
  Age: 64 Year
  Sex: Female
  Weight: 49 kg

DRUGS (8)
  1. OXYCODONE HCL [Suspect]
     Indication: BACK PAIN
     Dosage: 10 MG QID ORAL
     Route: 048
     Dates: start: 20051104
  2. DICLOFENAC POTASSIUM [Concomitant]
  3. PARACETAMOL [Concomitant]
  4. OMEPRAZOLE [Concomitant]
  5. KARVEZIDE (HYDROCHLOROTHIAZIDE, IRBESARTAN) [Concomitant]
  6. TRADELIA (ESTRADIOL) [Concomitant]
  7. SODIUM PICOSULFATE [Concomitant]
  8. DULCOLAX [Concomitant]

REACTIONS (1)
  - ABDOMINAL PAIN [None]
